FAERS Safety Report 14853970 (Version 1)
Quarter: 2018Q2

REPORT INFORMATION
  Report Type: Spontaneous
  Country: IE (occurrence: IE)
  Receive Date: 20180507
  Receipt Date: 20180507
  Transmission Date: 20180711
  Serious: Yes (Hospitalization, Other)
  Sender: FDA-Public Use
  Company Number: IE-MYLANLABS-2018M1028227

PATIENT
  Age: 63 Year
  Sex: Female

DRUGS (2)
  1. LEVOTHYROXINE. [Concomitant]
     Active Substance: LEVOTHYROXINE
     Indication: HYPOTHYROIDISM
     Dosage: UNK
     Route: 065
  2. METHOTREXATE. [Suspect]
     Active Substance: METHOTREXATE
     Indication: RHEUMATOID ARTHRITIS
     Dosage: UNK
     Route: 065

REACTIONS (17)
  - Blood bilirubin increased [Recovered/Resolved]
  - Granulomatous liver disease [Recovered/Resolved]
  - Blood lactic acid decreased [Recovered/Resolved]
  - Blood albumin decreased [Recovered/Resolved]
  - Gamma-glutamyltransferase increased [Recovered/Resolved]
  - Hepatomegaly [Recovered/Resolved]
  - Prothrombin time prolonged [Recovered/Resolved]
  - Nausea [Recovered/Resolved]
  - Hepatitis acute [Recovered/Resolved]
  - Hepatic necrosis [Recovered/Resolved]
  - Blood alkaline phosphatase increased [Recovered/Resolved]
  - Chills [Recovered/Resolved]
  - Q fever [Recovered/Resolved]
  - Hepatic steatosis [Recovered/Resolved]
  - Cholestasis [Recovered/Resolved]
  - Alanine aminotransferase increased [Recovered/Resolved]
  - C-reactive protein increased [Recovered/Resolved]
